FAERS Safety Report 17660855 (Version 1)
Quarter: 2020Q2

REPORT INFORMATION
  Report Type: Spontaneous
  Country: US (occurrence: US)
  Receive Date: 20200413
  Receipt Date: 20200413
  Transmission Date: 20200713
  Serious: No
  Sender: FDA-Public Use
  Company Number: US-SA-2020SA093343

PATIENT
  Sex: Female

DRUGS (19)
  1. MELATONIN [Concomitant]
     Active Substance: MELATONIN
  2. PRESERVISION AREDS [Concomitant]
     Active Substance: MINERALS\VITAMINS
  3. BIOTIN [Concomitant]
     Active Substance: BIOTIN
  4. DUPIXENT [Suspect]
     Active Substance: DUPILUMAB
     Indication: DERMATITIS ATOPIC
     Dosage: 300 MG, QOW
     Route: 058
  5. FLUOCINOLONE ACETONIDE. [Concomitant]
     Active Substance: FLUOCINOLONE ACETONIDE
  6. XARELTO [Concomitant]
     Active Substance: RIVAROXABAN
  7. TACROLIMUS. [Concomitant]
     Active Substance: TACROLIMUS
  8. POLYMYXIN B SULFATE. [Concomitant]
     Active Substance: POLYMYXIN B SULFATE
  9. CLONAZEPAM. [Concomitant]
     Active Substance: CLONAZEPAM
  10. ESZOPICLONE. [Concomitant]
     Active Substance: ESZOPICLONE
  11. ALEVE [Concomitant]
     Active Substance: NAPROXEN SODIUM
  12. VITAMIN D3 [Concomitant]
     Active Substance: CHOLECALCIFEROL
  13. OXCARBAZEPINE. [Concomitant]
     Active Substance: OXCARBAZEPINE
  14. PROLIA [Concomitant]
     Active Substance: DENOSUMAB
  15. KETOROLAC TROMETHAMINE. [Concomitant]
     Active Substance: KETOROLAC TROMETHAMINE
  16. CELEBREX [Concomitant]
     Active Substance: CELECOXIB
  17. EUCRISA [Concomitant]
     Active Substance: CRISABOROLE
  18. MOBIC [Concomitant]
     Active Substance: MELOXICAM
  19. PROTONIX [OMEPRAZOLE] [Concomitant]
     Active Substance: OMEPRAZOLE

REACTIONS (1)
  - Eosinophil count increased [Unknown]
